FAERS Safety Report 21418190 (Version 2)
Quarter: 2022Q4

REPORT INFORMATION
  Report Type: Spontaneous
  Country: HR (occurrence: HR)
  Receive Date: 20221006
  Receipt Date: 20221019
  Transmission Date: 20230113
  Serious: Yes (Other)
  Sender: FDA-Public Use
  Company Number: HR-SAMSUNG BIOEPIS-SB-2022-24797

PATIENT
  Age: 56 Year
  Sex: Female

DRUGS (18)
  1. ETANERCEPT [Suspect]
     Active Substance: ETANERCEPT
     Indication: Rheumatoid arthritis
     Route: 058
     Dates: start: 201810, end: 202209
  2. ETORICOXIB [Concomitant]
     Active Substance: ETORICOXIB
     Indication: Product used for unknown indication
     Dosage: 1 X 1
     Route: 065
  3. ARCOXIA [Concomitant]
     Active Substance: ETORICOXIB
     Indication: Product used for unknown indication
     Dosage: (0-0-1)
     Route: 065
  4. ARCOXIA [Concomitant]
     Active Substance: ETORICOXIB
     Dosage: (0-0-1)
     Route: 065
  5. ACETAMINOPHEN [Concomitant]
     Active Substance: ACETAMINOPHEN
     Indication: Product used for unknown indication
     Dosage: 500 TO 5 TABLETS IF NEEDED
     Route: 065
  6. ACETAMINOPHEN\TRAMADOL HYDROCHLORIDE [Concomitant]
     Active Substance: ACETAMINOPHEN\TRAMADOL HYDROCHLORIDE
     Indication: Product used for unknown indication
     Dosage: 2 EVERY DAY IF NEEDED
     Route: 065
  7. ACETAMINOPHEN\TRAMADOL HYDROCHLORIDE [Concomitant]
     Active Substance: ACETAMINOPHEN\TRAMADOL HYDROCHLORIDE
     Dosage: 0,0, 1-2 TO 3X1 IF NEEDED, BEFORE SLEEP
     Route: 065
  8. ESOMEPRAZOLE MAGNESIUM [Concomitant]
     Active Substance: ESOMEPRAZOLE MAGNESIUM
     Indication: Product used for unknown indication
     Dosage: 1-0-1
     Route: 065
  9. Folacin [Concomitant]
     Indication: Product used for unknown indication
     Dosage: 1X1 ONE WEEK AFTER METHOTREXATE (5 MG 2 X 1 TABLET WEEKLY)
     Route: 065
  10. DIPHENHYDRAMINE [Concomitant]
     Active Substance: DIPHENHYDRAMINE
     Indication: Product used for unknown indication
     Route: 030
  11. PREDNISONE [Concomitant]
     Active Substance: PREDNISONE
     Indication: Product used for unknown indication
     Dosage: IN THE MORNING AFTER BREAKFAST, UNKNOWN
     Route: 065
  12. PREDNISONE [Concomitant]
     Active Substance: PREDNISONE
     Dosage: 7.5/1.5 MONTH
     Route: 065
  13. LEFLUNOMIDE [Concomitant]
     Active Substance: LEFLUNOMIDE
     Indication: Product used for unknown indication
     Dosage: UNKNOWN
     Route: 065
  14. ARAVA [Concomitant]
     Active Substance: LEFLUNOMIDE
     Indication: Product used for unknown indication
     Dosage: 1X1 BEFORE LUNCH
     Route: 065
  15. KOSTAROX [Concomitant]
     Indication: Product used for unknown indication
     Dosage: 0,0,1 OR 1 - 2X1 AS NEEDED
     Route: 065
  16. METHOTREXATE [Concomitant]
     Active Substance: METHOTREXATE
     Indication: Product used for unknown indication
     Route: 065
     Dates: start: 201610
  17. VIZOL S [Concomitant]
     Indication: Product used for unknown indication
     Dosage: UNKNOWN, DROPS
     Route: 065
  18. SOLVEN [SOLIFENACIN SUCCINATE] [Concomitant]
     Indication: Product used for unknown indication
     Route: 065

REACTIONS (6)
  - Cystitis [Recovered/Resolved]
  - Therapeutic product effect decreased [Unknown]
  - Rheumatoid arthritis [Unknown]
  - Viral infection [Unknown]
  - Productive cough [Unknown]
  - Musculoskeletal stiffness [Unknown]

NARRATIVE: CASE EVENT DATE: 20181110
